FAERS Safety Report 7555680-9 (Version None)
Quarter: 2011Q2

REPORT INFORMATION
  Report Type: 
  Country: None (occurrence: None)
  Receive Date: 20110617
  Receipt Date: 20110603
  Transmission Date: 20111010
  Serious: Yes (Hospitalization, Disabling)
  Sender: FDA-Public Use
  Company Number: PT-GENENTECH-319865

PATIENT
  Age: 60 Year
  Sex: Female

DRUGS (2)
  1. RITUXIMAB [Suspect]
     Indication: PEMPHIGUS
     Dosage: 1000 MG, UNK
     Route: 042
     Dates: start: 20110220
  2. CELLCEPT [Suspect]
     Indication: PEMPHIGUS
     Dosage: UNK
     Route: 048
     Dates: start: 20110301, end: 20110401

REACTIONS (5)
  - HAEMORRHAGE [None]
  - THROMBOCYTOPENIA [None]
  - NEUROPATHY PERIPHERAL [None]
  - NOSOCOMIAL INFECTION [None]
  - ALVEOLITIS [None]
